APPROVED DRUG PRODUCT: ZONISAMIDE
Active Ingredient: ZONISAMIDE
Strength: 50MG
Dosage Form/Route: CAPSULE;ORAL
Application: A077645 | Product #003 | TE Code: AB
Applicant: AUROBINDO PHARMA LTD
Approved: Sep 29, 2006 | RLD: No | RS: No | Type: RX